FAERS Safety Report 12816158 (Version 1)
Quarter: 2016Q4

REPORT INFORMATION
  Report Type: Spontaneous
  Country: US (occurrence: US)
  Receive Date: 20161005
  Receipt Date: 20161005
  Transmission Date: 20170207
  Serious: No
  Sender: FDA-Public Use
  Company Number: US-AMGEN-USASP2015131857

PATIENT
  Age: 56 Year
  Sex: Female

DRUGS (1)
  1. PROLIA [Suspect]
     Active Substance: DENOSUMAB
     Indication: OSTEOPOROSIS POSTMENOPAUSAL
     Dosage: UNK
     Route: 065
     Dates: start: 201510

REACTIONS (11)
  - Dysphonia [Unknown]
  - Diarrhoea [Unknown]
  - Pain in extremity [Unknown]
  - Cystitis [Unknown]
  - Flatulence [Unknown]
  - Arthralgia [Unknown]
  - Cough [Unknown]
  - Bronchitis [Unknown]
  - Back pain [Not Recovered/Not Resolved]
  - Oropharyngeal pain [Unknown]
  - Musculoskeletal pain [Unknown]

NARRATIVE: CASE EVENT DATE: 2015
